FAERS Safety Report 4381173-6 (Version None)
Quarter: 2004Q2

REPORT INFORMATION
  Report Type: 
  Country: None (occurrence: None)
  Receive Date: 20040617
  Receipt Date: 20040617
  Transmission Date: 20050107
  Serious: Yes (Other)
  Sender: FDA-Public Use
  Company Number: None

PATIENT
  Age: 45 Year
  Sex: Male
  Weight: 97.5234 kg

DRUGS (1)
  1. TOPAMAX [Suspect]
     Indication: TORTICOLLIS
     Dosage: 1 25 MG TABLET
     Dates: start: 20040316, end: 20040318

REACTIONS (4)
  - ACQUIRED NIGHT BLINDNESS [None]
  - EYE PAIN [None]
  - PHOTOSENSITIVITY REACTION [None]
  - VISION BLURRED [None]
